FAERS Safety Report 10242349 (Version 1)
Quarter: 2014Q2

REPORT INFORMATION
  Report Type: Spontaneous
  Country: US (occurrence: US)
  Receive Date: 20140617
  Receipt Date: 20140617
  Transmission Date: 20141212
  Serious: No
  Sender: FDA-Public Use
  Company Number: US-TEVA-486955USA

PATIENT
  Age: 6 Decade
  Sex: Female
  Weight: 54.48 kg

DRUGS (5)
  1. NUVIGIL [Suspect]
     Indication: MULTIPLE SCLEROSIS
     Dosage: 150 OR 200 MG
     Dates: start: 2014, end: 201405
  2. NUVIGIL [Suspect]
     Indication: FATIGUE
  3. COPAXONE [Concomitant]
     Dosage: 20 MILLIGRAM DAILY;
     Dates: start: 201404, end: 201406
  4. COPAXONE [Concomitant]
     Dosage: 17.1429 MILLIGRAM DAILY;
     Dates: start: 20140610
  5. OXTELLAR [Concomitant]
     Indication: TRIGEMINAL NEURALGIA
     Dosage: 600 MILLIGRAM DAILY;

REACTIONS (2)
  - Fatigue [Not Recovered/Not Resolved]
  - Activities of daily living impaired [Not Recovered/Not Resolved]
